FAERS Safety Report 20302418 (Version 4)
Quarter: 2022Q1

REPORT INFORMATION
  Report Type: Report from Study
  Country: US (occurrence: US)
  Receive Date: 20220106
  Receipt Date: 20220328
  Transmission Date: 20220423
  Serious: Yes (Life-Threatening, Hospitalization, Disabling, Other)
  Sender: FDA-Public Use
  Company Number: US-NOVARTISTESTPH-NVSC2022US001324

PATIENT
  Age: 64 Year
  Sex: Male

DRUGS (1)
  1. ZORTRESS [Suspect]
     Active Substance: EVEROLIMUS
     Indication: Liver transplant rejection
     Dosage: 1 MG, BID
     Route: 048
     Dates: start: 20180705

REACTIONS (7)
  - Cerebrovascular accident [Recovered/Resolved with Sequelae]
  - Speech disorder [Recovering/Resolving]
  - Hypoaesthesia [Unknown]
  - Dysgraphia [Unknown]
  - COVID-19 [Recovered/Resolved]
  - Nasopharyngitis [Unknown]
  - Cough [Unknown]

NARRATIVE: CASE EVENT DATE: 20181115
